FAERS Safety Report 4460117-2 (Version None)
Quarter: 2004Q3

REPORT INFORMATION
  Report Type: 
  Country: None (occurrence: None)
  Receive Date: 20040928
  Receipt Date: 20031217
  Transmission Date: 20050211
  Serious: No
  Sender: FDA-Public Use
  Company Number: US-GLAXOSMITHKLINE-A0443489A

PATIENT
  Age: 65 Year
  Sex: Female

DRUGS (8)
  1. SEREVENT [Suspect]
     Indication: ASTHMA
     Dosage: 1PUFF TWICE PER DAY
     Route: 055
  2. ALBUTEROL [Concomitant]
  3. FLOVENT [Concomitant]
  4. FLONASE [Concomitant]
  5. GLUCOPHAGE [Concomitant]
  6. AVANDIA [Concomitant]
  7. COUMADIN [Concomitant]
  8. ZOCOR [Concomitant]

REACTIONS (1)
  - ORAL PAIN [None]
